FAERS Safety Report 18582343 (Version 1)
Quarter: 2020Q4

REPORT INFORMATION
  Report Type: Spontaneous
  Country: US (occurrence: US)
  Receive Date: 20201202
  Receipt Date: 20201202
  Transmission Date: 20210114
  Serious: Yes (Hospitalization)
  Sender: FDA-Public Use
  Company Number: None

PATIENT
  Age: 89 Year
  Sex: Male
  Weight: 87 kg

DRUGS (1)
  1. SULFAMETHOXAZOLE/TRIMETHOPRIM (SULFAMETHOXAZOLE 800MG/TRIMETHOPRIM 160 [Suspect]
     Active Substance: SULFAMETHOXAZOLE\TRIMETHOPRIM
     Indication: URINARY TRACT INFECTION
     Route: 048
     Dates: start: 20201005, end: 20201011

REACTIONS (16)
  - Metabolic acidosis [None]
  - Electrocardiogram T wave peaked [None]
  - Hypertension [None]
  - Hypoaldosteronism [None]
  - Inappropriate antidiuretic hormone secretion [None]
  - Drug hypersensitivity [None]
  - Oedema peripheral [None]
  - Hyperkalaemia [None]
  - Asthenia [None]
  - Blood electrolytes abnormal [None]
  - Toxicity to various agents [None]
  - Hypernatraemia [None]
  - Acute kidney injury [None]
  - Pyrexia [None]
  - Brain natriuretic peptide increased [None]
  - Renal tubular acidosis [None]

NARRATIVE: CASE EVENT DATE: 20201011
